FAERS Safety Report 8326324-3 (Version None)
Quarter: 2012Q2

REPORT INFORMATION
  Report Type: 
  Country: None (occurrence: None)
  Receive Date: 20120501
  Receipt Date: 20120418
  Transmission Date: 20120825
  Serious: Yes (Hospitalization)
  Sender: FDA-Public Use
  Company Number: US-ELI_LILLY_AND_COMPANY-US201204006572

PATIENT
  Sex: Female

DRUGS (1)
  1. ALIMTA [Suspect]
     Indication: NON-SMALL CELL LUNG CANCER
     Dosage: 660 MG, EVERY 21 DAYS
     Dates: start: 20120120, end: 20120406

REACTIONS (5)
  - DIARRHOEA [None]
  - ACTIVATED PARTIAL THROMBOPLASTIN TIME PROLONGED [None]
  - PANCYTOPENIA [None]
  - MUCOSAL INFLAMMATION [None]
  - PROTHROMBIN TIME PROLONGED [None]
